FAERS Safety Report 9415045 (Version 1)
Quarter: 2013Q3

REPORT INFORMATION
  Report Type: Spontaneous
  Country: US (occurrence: US)
  Receive Date: 20130723
  Receipt Date: 20130723
  Transmission Date: 20140515
  Serious: No
  Sender: FDA-Public Use
  Company Number: US-009507513-1306USA010974

PATIENT
  Sex: Male

DRUGS (3)
  1. ISENTRESS [Suspect]
     Indication: HIV INFECTION
     Dosage: 400 MG, TWICE DAILY
     Route: 048
  2. PREZISTA [Concomitant]
  3. NORVIR [Concomitant]

REACTIONS (2)
  - Nervous system disorder [Unknown]
  - Blood cholesterol abnormal [Unknown]
